FAERS Safety Report 5429267-8 (Version None)
Quarter: 2007Q3

REPORT INFORMATION
  Report Type: 
  Country: None (occurrence: None)
  Receive Date: 20070829
  Receipt Date: 20070821
  Transmission Date: 20080115
  Serious: Yes (Hospitalization)
  Sender: FDA-Public Use
  Company Number: FR-AVENTIS-SE51-00083

PATIENT
  Age: 31 Year
  Sex: Male

DRUGS (3)
  1. MINIRIN [Suspect]
     Indication: DIABETES INSIPIDUS
     Route: 045
     Dates: start: 19810601, end: 19960101
  2. MINIRIN [Suspect]
     Route: 045
     Dates: start: 19960101, end: 19960516
  3. MINIRIN [Suspect]
     Dosage: DOSE: STANDARD DOSE
     Route: 045
     Dates: start: 19960517

REACTIONS (4)
  - HYPONATRAEMIA [None]
  - OVERDOSE [None]
  - RENAL FAILURE ACUTE [None]
  - TONGUE DISORDER [None]
